FAERS Safety Report 8159295-3 (Version None)
Quarter: 2012Q1

REPORT INFORMATION
  Report Type: 
  Country: None (occurrence: None)
  Receive Date: 20120223
  Receipt Date: 20120217
  Transmission Date: 20120608
  Serious: Yes (Other)
  Sender: FDA-Public Use
  Company Number: CL-PFIZER INC-2012035747

PATIENT
  Age: 81 Year
  Sex: Male

DRUGS (3)
  1. AZULFIDINE [Suspect]
     Dosage: 250 MG, 1X/DAY
     Route: 048
     Dates: start: 20120101
  2. BERSEN [Concomitant]
     Dosage: UNK
     Dates: start: 20120129
  3. AZULFIDINE [Suspect]
     Indication: COLITIS ULCERATIVE
     Dosage: 500 MG, 1X/DAY
     Route: 048
     Dates: start: 20120129

REACTIONS (3)
  - DYSSTASIA [None]
  - MUSCLE SPASMS [None]
  - PAIN IN EXTREMITY [None]
